FAERS Safety Report 7502418-7 (Version None)
Quarter: 2011Q2

REPORT INFORMATION
  Report Type: 
  Country: None (occurrence: None)
  Receive Date: 20110525
  Receipt Date: 20110520
  Transmission Date: 20111010
  Serious: Yes (Other)
  Sender: FDA-Public Use
  Company Number: US-PFIZER INC-2011096136

PATIENT
  Sex: Female

DRUGS (9)
  1. ZYPREXA [Concomitant]
     Dosage: 5 MG, 1X/DAY
  2. SYNTHROID [Concomitant]
     Dosage: 125 UG, 1X/DAY
  3. PREMARIN [Suspect]
     Indication: TRICHOMONIASIS
  4. TRAZODONE [Concomitant]
     Dosage: 50 MG, 1X/DAY
  5. ZOCOR [Concomitant]
     Dosage: 20 MG, 1X/DAY
  6. PREMARIN [Suspect]
     Indication: VULVOVAGINAL BURNING SENSATION
  7. PREMARIN [Suspect]
     Indication: OFF LABEL USE
  8. SEROQUEL [Concomitant]
     Dosage: DAILY
  9. SERTRALINE [Concomitant]
     Dosage: 25 MG, 1X/DAY

REACTIONS (2)
  - DRUG INEFFECTIVE [None]
  - TRICHOMONIASIS [None]
